FAERS Safety Report 5690652-0 (Version None)
Quarter: 2008Q1

REPORT INFORMATION
  Report Type: 
  Country: None (occurrence: None)
  Receive Date: 20080331
  Receipt Date: 20080331
  Transmission Date: 20080703
  Serious: No
  Sender: FDA-Public Use
  Company Number: None

PATIENT
  Age: 7 Year
  Sex: Female
  Weight: 30.8446 kg

DRUGS (1)
  1. ENBREL [Suspect]
     Indication: JUVENILE ARTHRITIS
     Dosage: .5 MLS MON AND THURS SQ
     Route: 058
     Dates: start: 20070606, end: 20080317

REACTIONS (3)
  - CONDITION AGGRAVATED [None]
  - MELANOCYTIC NAEVUS [None]
  - MYCOSIS FUNGOIDES [None]
